FAERS Safety Report 4846871-6 (Version None)
Quarter: 2005Q4

REPORT INFORMATION
  Report Type: 
  Country: None (occurrence: None)
  Receive Date: 20051201
  Receipt Date: 20051118
  Transmission Date: 20060501
  Serious: Yes (Other)
  Sender: FDA-Public Use
  Company Number: 200513979GDS

PATIENT
  Age: 48 Year
  Sex: Male

DRUGS (2)
  1. CIPRO [Suspect]
  2. METHADONE [Suspect]

REACTIONS (5)
  - ANXIETY [None]
  - CONFUSIONAL STATE [None]
  - DEPRESSED LEVEL OF CONSCIOUSNESS [None]
  - DRUG LEVEL INCREASED [None]
  - PERSONALITY DISORDER [None]
